FAERS Safety Report 8120990-3 (Version None)
Quarter: 2012Q1

REPORT INFORMATION
  Report Type: 
  Country: None (occurrence: None)
  Receive Date: 20120208
  Receipt Date: 20120126
  Transmission Date: 20120608
  Serious: Yes (Hospitalization)
  Sender: FDA-Public Use
  Company Number: US-UCBSA-050353

PATIENT
  Age: 60 Year
  Sex: Male
  Weight: 113.3 kg

DRUGS (1)
  1. VIMPAT [Suspect]
     Indication: CONVULSION
     Route: 048
     Dates: start: 20110201

REACTIONS (2)
  - CONVULSION [None]
  - ABNORMAL DREAMS [None]
